FAERS Safety Report 6468761-8 (Version None)
Quarter: 2009Q4

REPORT INFORMATION
  Report Type: 
  Country: None (occurrence: None)
  Receive Date: 20091203
  Receipt Date: 20091102
  Transmission Date: 20100525
  Serious: No
  Sender: FDA-Public Use
  Company Number: US-BAYER-200939010NA

PATIENT
  Age: 34 Year
  Sex: Female

DRUGS (3)
  1. MAGNEVIST [Suspect]
     Indication: NUCLEAR MAGNETIC RESONANCE IMAGING BRAIN
     Dosage: TOTAL DAILY DOSE: 8 ML
     Route: 042
  2. LOESTRIN 1.5/30 [Concomitant]
     Indication: DRUG USE FOR UNKNOWN INDICATION
  3. ALEVE [Concomitant]
     Indication: DRUG USE FOR UNKNOWN INDICATION

REACTIONS (3)
  - OROPHARYNGEAL DISCOMFORT [None]
  - THROAT IRRITATION [None]
  - VOMITING [None]
